FAERS Safety Report 4562199-6 (Version None)
Quarter: 2005Q1

REPORT INFORMATION
  Report Type: 
  Country: None (occurrence: None)
  Receive Date: 20050124
  Receipt Date: 20050107
  Transmission Date: 20050727
  Serious: Yes (Other)
  Sender: FDA-Public Use
  Company Number: B0363764A

PATIENT
  Age: 35 Year
  Sex: Male

DRUGS (2)
  1. EPIVIR [Suspect]
  2. STAVUDINE [Suspect]

REACTIONS (5)
  - CONDITION AGGRAVATED [None]
  - KAPOSI'S SARCOMA [None]
  - LYMPHADENOPATHY [None]
  - PERIORBITAL OEDEMA [None]
  - SWELLING FACE [None]
